FAERS Safety Report 5589642-8 (Version None)
Quarter: 2008Q1

REPORT INFORMATION
  Report Type: 
  Country: None (occurrence: None)
  Receive Date: 20080114
  Receipt Date: 20080103
  Transmission Date: 20080703
  Serious: Yes (Other)
  Sender: FDA-Public Use
  Company Number: B0360915A

PATIENT
  Sex: Male

DRUGS (4)
  1. PAROXETINE HYDROCHLORIDE [Suspect]
     Route: 065
     Dates: start: 20010601, end: 20040101
  2. PAROXETINE HYDROCHLORIDE [Suspect]
     Route: 065
     Dates: end: 20020701
  3. ZOPICLONE [Concomitant]
     Indication: INSOMNIA
     Dosage: 3.75MG AS REQUIRED
  4. FLUOXETINE HYDROCHLORIDE [Concomitant]
     Route: 065
     Dates: start: 20030403

REACTIONS (12)
  - AGGRESSION [None]
  - ANGER [None]
  - ANXIETY [None]
  - DEPRESSED MOOD [None]
  - DRUG WITHDRAWAL SYNDROME [None]
  - FATIGUE [None]
  - IRRITABILITY [None]
  - MOOD SWINGS [None]
  - PARANOIA [None]
  - SELF ESTEEM DECREASED [None]
  - SLEEP DISORDER [None]
  - SUICIDAL IDEATION [None]
